FAERS Safety Report 20152902 (Version 1)
Quarter: 2021Q4

REPORT INFORMATION
  Report Type: Spontaneous
  Country: US (occurrence: None)
  Receive Date: 20211206
  Receipt Date: 20211206
  Transmission Date: 20220304
  Serious: Yes (Hospitalization)
  Sender: FDA-Public Use
  Company Number: None

PATIENT
  Sex: Male

DRUGS (5)
  1. SILDENAFIL [Suspect]
     Active Substance: SILDENAFIL
     Indication: Hypoplastic left heart syndrome
     Route: 048
     Dates: start: 20210709
  2. ALLOPURINOL POW [Concomitant]
  3. ASPIRIN LOW [Concomitant]
  4. FUROSDEMID SOL [Concomitant]
  5. SYNAGIS [Concomitant]

REACTIONS (1)
  - Hospitalisation [None]
